FAERS Safety Report 20112985 (Version 1)
Quarter: 2021Q4

REPORT INFORMATION
  Report Type: Spontaneous
  Country: US (occurrence: None)
  Receive Date: 20211124
  Receipt Date: 20211124
  Transmission Date: 20220304
  Serious: Yes (Other)
  Sender: FDA-Public Use
  Company Number: None

PATIENT
  Age: 66 Year
  Sex: Female
  Weight: 74.25 kg

DRUGS (11)
  1. HIZENTRA [Suspect]
     Active Substance: HUMAN IMMUNOGLOBULIN G
     Indication: Polymyositis
     Dosage: OTHER FREQUENCY : EVERY WEEK;?
     Route: 058
  2. Acetaminophen (650 mg) [Concomitant]
  3. Caltrate 600+D (600 mg) [Concomitant]
  4. Claritin (10 mg) [Concomitant]
  5. Clonazepan (1 mg) [Concomitant]
  6. Lisinopril-hydrochlorothiazide (10-12.5 mg) [Concomitant]
  7. Metformin (1000 mg) [Concomitant]
  8. Prilosec (20 mg) [Concomitant]
  9. Vitamin D3 (50000 units) [Concomitant]
  10. Wellbutrin XL (300 mg) [Concomitant]
  11. prednisone (10 mg) [Concomitant]

REACTIONS (4)
  - Injection site erythema [None]
  - Injection site warmth [None]
  - Injection site pruritus [None]
  - Injection site reaction [None]

NARRATIVE: CASE EVENT DATE: 20211117
